FAERS Safety Report 22049053 (Version 9)
Quarter: 2023Q4

REPORT INFORMATION
  Report Type: Spontaneous
  Country: US (occurrence: US)
  Receive Date: 20230301
  Receipt Date: 20231122
  Transmission Date: 20240109
  Serious: Yes (Hospitalization, Other)
  Sender: FDA-Public Use
  Company Number: US-PFIZER INC-PV202300011277

PATIENT
  Age: 76 Year
  Sex: Female
  Weight: 81.633 kg

DRUGS (4)
  1. IBRANCE [Suspect]
     Active Substance: PALBOCICLIB
     Indication: Breast cancer metastatic
     Dosage: 125 MG
     Dates: start: 202301
  2. IBRANCE [Suspect]
     Active Substance: PALBOCICLIB
     Dosage: 100 MG, 1X/DAY
  3. IBRANCE [Suspect]
     Active Substance: PALBOCICLIB
     Dosage: 75 MG
     Dates: start: 20230313, end: 202306
  4. ESTROGENS [Concomitant]
     Active Substance: ESTROGENS
     Dosage: UNK, 1X/DAY

REACTIONS (19)
  - Osteogenesis imperfecta [Not Recovered/Not Resolved]
  - White blood cell count decreased [Not Recovered/Not Resolved]
  - Full blood count decreased [Recovering/Resolving]
  - Malaise [Not Recovered/Not Resolved]
  - Decreased immune responsiveness [Unknown]
  - Feeling abnormal [Unknown]
  - Asthenia [Unknown]
  - Bone disorder [Unknown]
  - Bradykinesia [Unknown]
  - Infusion related reaction [Unknown]
  - Influenza like illness [Unknown]
  - Fatigue [Unknown]
  - Hot flush [Not Recovered/Not Resolved]
  - Arthritis [Unknown]
  - Gait disturbance [Not Recovered/Not Resolved]
  - Hip fracture [Unknown]
  - Chest discomfort [Unknown]
  - Fall [Unknown]
  - Peripheral swelling [Unknown]
